FAERS Safety Report 21981834 (Version 2)
Quarter: 2023Q2

REPORT INFORMATION
  Report Type: Report from Study
  Country: US (occurrence: US)
  Receive Date: 20230212
  Receipt Date: 20230414
  Transmission Date: 20230722
  Serious: Yes (Other)
  Sender: FDA-Public Use
  Company Number: US-ABBVIE-22K-163-4473468-00

PATIENT
  Age: 49 Year
  Sex: Female

DRUGS (2)
  1. HUMIRA [Suspect]
     Active Substance: ADALIMUMAB
     Indication: Crohn^s disease
     Dosage: CITRATE FREE/FORM STRENGTH: 40 MG
     Route: 058
     Dates: start: 20211001
  2. HUMIRA [Suspect]
     Active Substance: ADALIMUMAB
     Dosage: CITRATE FREE/FORM STRENGTH: 40 MG
     Route: 058

REACTIONS (7)
  - Colitis [Unknown]
  - Gastrointestinal infection [Unknown]
  - Constipation [Recovering/Resolving]
  - Hypovitaminosis [Unknown]
  - Functional gastrointestinal disorder [Recovering/Resolving]
  - Anaemia [Unknown]
  - Polyp [Unknown]

NARRATIVE: CASE EVENT DATE: 20221201
